FAERS Safety Report 16777494 (Version 2)
Quarter: 2019Q3

REPORT INFORMATION
  Report Type: Spontaneous
  Country: FR (occurrence: FR)
  Receive Date: 20190905
  Receipt Date: 20190916
  Transmission Date: 20191005
  Serious: Yes (Hospitalization, Other)
  Sender: FDA-Public Use
  Company Number: FR-ASCEND THERAPEUTICS US, LLC-2074080

PATIENT
  Age: 69 Year
  Sex: Female

DRUGS (17)
  1. VALACICLOVIR TABLET?INDICATION FOR USE: HERPES LABIALIS [Concomitant]
     Active Substance: VALACYCLOVIR HYDROCHLORIDE
     Route: 048
  2. VALSARTAN. [Suspect]
     Active Substance: VALSARTAN
     Route: 048
  3. OESCLIM (ESTRADIOL) [Suspect]
     Active Substance: ESTRADIOL
  4. HYDROXYCHLOROQUINE?INDICATION FOR USE: DRUG USE FOR UNKNOWN INDICATION [Concomitant]
  5. VITAMIN D3 [Suspect]
     Active Substance: CHOLECALCIFEROL
  6. DAFALGAN (PARACEMATOL) TID (8HRS)?INDICATION FOR USE: RHEUMATOID ARTHR [Concomitant]
  7. ESTROGEL [Suspect]
     Active Substance: ESTRADIOL
     Indication: OESTROGEN REPLACEMENT THERAPY
     Route: 062
  8. OROCAL (CALCIUM CARBONATE)?INDICATION FOR USE: DRUG USE FOR UNKNOWN IN [Concomitant]
  9. CORTANCYL (PREDNISONE), UNKNOWN?INDICATION FOR USE: POLYARTHRITIS [Suspect]
     Active Substance: PREDNISONE
     Route: 048
  10. PARACETAMOL?DRUG USE FOR UNKNOWN INDICATION [Suspect]
     Active Substance: ACETAMINOPHEN
     Route: 048
  11. ARAVA [Suspect]
     Active Substance: LEFLUNOMIDE
  12. INFLIXIMAB?INDICATION FOR USE: DRUG USE FOR UNKNOWN INDICATION [Concomitant]
  13. MABTHERA [Suspect]
     Active Substance: RITUXIMAB
     Route: 042
  14. METHOTREXATE. [Suspect]
     Active Substance: METHOTREXATE
  15. ACTONEL [Suspect]
     Active Substance: RISEDRONATE SODIUM
     Route: 048
     Dates: start: 2006, end: 2009
  16. OFLOXACIN. [Concomitant]
     Active Substance: OFLOXACIN
     Route: 048
     Dates: start: 20100820, end: 20100823
  17. TAREG (VALSARTAN)?INDICATION FOR USE: DRUG USE FOR UNKNOWN INDICATION [Concomitant]
     Route: 048

REACTIONS (6)
  - Osteonecrosis of jaw [Unknown]
  - Periodontitis [Unknown]
  - Oral pain [Unknown]
  - Pain in jaw [Unknown]
  - Gingival ulceration [Unknown]
  - Oral herpes [Recovered/Resolved]

NARRATIVE: CASE EVENT DATE: 201008
